FAERS Safety Report 24570896 (Version 3)
Quarter: 2024Q4

REPORT INFORMATION
  Report Type: Spontaneous
  Country: GR (occurrence: GR)
  Receive Date: 20241101
  Receipt Date: 20241203
  Transmission Date: 20250115
  Serious: Yes (Hospitalization)
  Sender: INSMED
  Company Number: GR-INSMED, INC.-2024-04399-GR

PATIENT
  Age: 48 Year
  Sex: Female

DRUGS (8)
  1. AMIKACIN [Suspect]
     Active Substance: AMIKACIN
     Indication: Pulmonary tuberculosis
     Dosage: UNK, UNK
     Route: 065
  2. AMIKACIN [Suspect]
     Active Substance: AMIKACIN
     Indication: Pulmonary tuberculosis
     Dosage: 750 MILLIGRAM, QD
     Route: 048
     Dates: start: 202211
  3. BEDAQUILINE [Suspect]
     Active Substance: BEDAQUILINE
     Indication: Pulmonary tuberculosis
     Dosage: UNK, UNK
     Route: 048
     Dates: start: 202211, end: 2022
  4. BEDAQUILINE [Suspect]
     Active Substance: BEDAQUILINE
     Dosage: 200 MILLIGRAM, TIW
     Route: 065
     Dates: start: 2022, end: 2022
  5. PRETOMANID [Suspect]
     Active Substance: PRETOMANID
     Indication: Pulmonary tuberculosis
     Dosage: 200 MILLIGRAM, QD
     Route: 048
     Dates: start: 202211
  6. LINEZOLID [Suspect]
     Active Substance: LINEZOLID
     Indication: Pulmonary tuberculosis
     Dosage: 600 MILLIGRAM, QD
     Route: 048
     Dates: start: 202211
  7. CYCLOSERINE [Suspect]
     Active Substance: CYCLOSERINE
     Indication: Pulmonary tuberculosis
     Dosage: 250 MILLIGRAM, BID
     Route: 048
     Dates: start: 202211, end: 2022
  8. CYCLOSERINE [Suspect]
     Active Substance: CYCLOSERINE
     Dosage: 500 MILLIGRAM, BID
     Route: 048
     Dates: start: 202211

REACTIONS (1)
  - Myocarditis [Recovered/Resolved]
